FAERS Safety Report 12806447 (Version 2)
Quarter: 2016Q4

REPORT INFORMATION
  Report Type: Report from Study
  Country: US (occurrence: US)
  Receive Date: 20161004
  Receipt Date: 20161128
  Transmission Date: 20170207
  Serious: Yes (Hospitalization)
  Sender: FDA-Public Use
  Company Number: US-UCBSA-2016037501

PATIENT
  Sex: Female
  Weight: 55 kg

DRUGS (3)
  1. CERTOLIZUMAB PEGOL [Suspect]
     Active Substance: CERTOLIZUMAB PEGOL
     Indication: RHEUMATOID ARTHRITIS
     Dosage: 400 MG, EV 2 WEEKS(QOW)
     Route: 058
     Dates: start: 20160825, end: 20161005
  2. MTX [Concomitant]
     Active Substance: METHOTREXATE SODIUM
     Indication: RHEUMATOID ARTHRITIS
     Dosage: 15 MG, WEEKLY (QW)
     Route: 048
  3. PREDNISONE. [Concomitant]
     Active Substance: PREDNISONE
     Indication: RHEUMATOID ARTHRITIS
     Dosage: UNK5 MG, DAILY
     Route: 048

REACTIONS (6)
  - Gallbladder disorder [Unknown]
  - Confusional state [Unknown]
  - Abdominal pain [Unknown]
  - Ill-defined disorder [Recovering/Resolving]
  - Asthenia [Recovering/Resolving]
  - Pelvi-ureteric obstruction [Unknown]

NARRATIVE: CASE EVENT DATE: 2016
